FAERS Safety Report 8909880 (Version 1)
Quarter: 2012Q4

REPORT INFORMATION
  Report Type: 
  Country: JP (occurrence: JP)
  Receive Date: 20121114
  Receipt Date: 20121114
  Transmission Date: 20130627
  Serious: Yes (Other)
  Sender: FDA-Public Use
  Company Number: JP-009507513-1211JPN005307

PATIENT
  Age: 54 Year
  Sex: Female

DRUGS (2)
  1. REBETOL [Suspect]
     Dosage: Daiky dosage unknown
     Route: 048
     Dates: start: 200910, end: 201005
  2. PEGINTRON [Suspect]
     Dosage: Daily dosage unknown
     Route: 058
     Dates: start: 200910, end: 201006

REACTIONS (2)
  - Leukopenia [Unknown]
  - Anaemia [Unknown]
